FAERS Safety Report 20714105 (Version 2)
Quarter: 2022Q2

REPORT INFORMATION
  Report Type: Spontaneous
  Country: CA (occurrence: CA)
  Receive Date: 20220415
  Receipt Date: 20220603
  Transmission Date: 20220721
  Serious: Yes (Life-Threatening, Disabling)
  Sender: FDA-Public Use
  Company Number: CA-PFIZER INC-202200531052

PATIENT
  Age: 5 Year
  Sex: Male
  Weight: 16 kg

DRUGS (16)
  1. VINCRISTINE SULFATE [Suspect]
     Active Substance: VINCRISTINE SULFATE
     Indication: Medulloblastoma
     Dosage: 0.7 MG
     Route: 042
     Dates: start: 20210709
  2. CISPLATIN [Suspect]
     Active Substance: CISPLATIN
     Indication: Medulloblastoma
     Dosage: 26 MG
     Route: 042
     Dates: start: 20210709, end: 20210709
  3. CYCLOPHOSPHAMIDE [Suspect]
     Active Substance: CYCLOPHOSPHAMIDE
     Indication: Medulloblastoma
     Dosage: 1020 MG, 20MG/ML
     Route: 042
     Dates: start: 20210710
  4. CLONIDINE [Concomitant]
     Active Substance: CLONIDINE
     Dosage: UNK
     Dates: start: 20210708, end: 20210712
  5. CYPROHEPTADINE HYDROCHLORIDE [Concomitant]
     Active Substance: CYPROHEPTADINE HYDROCHLORIDE
     Dosage: UNK
     Dates: start: 20210708, end: 20210712
  6. EMEND [Concomitant]
     Active Substance: APREPITANT
     Dosage: UNK
     Dates: start: 20210708, end: 20210712
  7. FOLIC ACID [Concomitant]
     Active Substance: FOLIC ACID
     Dosage: UNK
     Dates: start: 20210708, end: 20210712
  8. FUROSEMIDE [Concomitant]
     Active Substance: FUROSEMIDE
     Dosage: UNK
     Dates: start: 20210708, end: 20210712
  9. MAGNESIUM [Concomitant]
     Active Substance: MAGNESIUM
     Dosage: UNK
     Dates: start: 20210708, end: 20210712
  10. MESNA [Concomitant]
     Active Substance: MESNA
     Dosage: UNK
     Dates: start: 20210708, end: 20210712
  11. METOCLOPRAMIDE [Concomitant]
     Active Substance: METOCLOPRAMIDE
     Dosage: UNK
     Dates: start: 20210708, end: 20210712
  12. ONDANSETRON [Concomitant]
     Active Substance: ONDANSETRON
     Dosage: UNK
     Dates: start: 20210708, end: 20210712
  13. POLYETHYLENE GLYCOL COMPOUND [Concomitant]
     Dosage: UNK
     Dates: start: 20210708, end: 20210712
  14. RISPERIDONE [Concomitant]
     Active Substance: RISPERIDONE
     Dosage: UNK
     Dates: start: 20210708, end: 20210712
  15. SULFAMETHOXAZOLE\TRIMETHOPRIM [Concomitant]
     Active Substance: SULFAMETHOXAZOLE\TRIMETHOPRIM
     Dosage: UNK
     Dates: start: 20210708, end: 20210712
  16. VITAMINS NOS [Concomitant]
     Active Substance: VITAMINS
     Dosage: UNK
     Dates: start: 20210708, end: 20210712

REACTIONS (4)
  - Nephropathy toxic [Unknown]
  - Ototoxicity [Unknown]
  - Pancytopenia [Unknown]
  - Off label use [Unknown]

NARRATIVE: CASE EVENT DATE: 20210712
